FAERS Safety Report 4488281-X (Version None)
Quarter: 2004Q4

REPORT INFORMATION
  Report Type: 
  Country: None (occurrence: None)
  Receive Date: 20041026
  Receipt Date: 20041018
  Transmission Date: 20050328
  Serious: Yes (Death)
  Sender: FDA-Public Use
  Company Number: 163-20785-04100450

PATIENT
  Age: 76 Year
  Sex: Male

DRUGS (1)
  1. THALOMID [Suspect]
     Indication: MYELODYSPLASTIC SYNDROME
     Dosage: 50 MG, DAILY, ORAL
     Route: 048
     Dates: start: 20010820, end: 20040101

REACTIONS (2)
  - CARCINOMA [None]
  - METASTASIS [None]
